FAERS Safety Report 4850324-9 (Version None)
Quarter: 2005Q4

REPORT INFORMATION
  Report Type: 
  Country: None (occurrence: None)
  Receive Date: 20051123
  Receipt Date: 20050809
  Transmission Date: 20060501
  Serious: No
  Sender: FDA-Public Use
  Company Number: 216787

PATIENT
  Age: 77 Year
  Sex: Female

DRUGS (8)
  1. RAPTIVA [Suspect]
     Indication: PSORIASIS
     Dosage: 0.7 ML, 1/WEEK, SUBCUTANEOUS
     Route: 058
     Dates: start: 20040801
  2. CYCLOSPORINE [Concomitant]
  3. METHOTREXATE [Concomitant]
  4. DILANTIN [Concomitant]
  5. PHENOBARBITAL [Concomitant]
  6. HYDROCHLOROTHIAZIDE [Concomitant]
  7. THYROID MEDICATION (THYROID DRUG NOS) [Concomitant]
  8. NITRO-BID [Concomitant]

REACTIONS (1)
  - SOMNOLENCE [None]
